FAERS Safety Report 6817677-3 (Version None)
Quarter: 2010Q3

REPORT INFORMATION
  Report Type: 
  Country: None (occurrence: None)
  Receive Date: 20100706
  Receipt Date: 20100625
  Transmission Date: 20110219
  Serious: Yes (Other)
  Sender: FDA-Public Use
  Company Number: US-PFIZER INC-2010050243

PATIENT
  Age: 74 Year
  Sex: Female

DRUGS (1)
  1. XALATAN [Suspect]
     Dosage: UNK
     Route: 047

REACTIONS (4)
  - CONJUNCTIVITIS ALLERGIC [None]
  - DERMATITIS CONTACT [None]
  - HYPERSENSITIVITY [None]
  - NASOPHARYNGITIS [None]
